FAERS Safety Report 24464252 (Version 1)
Quarter: 2024Q4

REPORT INFORMATION
  Report Type: Report from Study
  Country: US (occurrence: US)
  Receive Date: 20241018
  Receipt Date: 20241018
  Transmission Date: 20250115
  Serious: No
  Sender: ROCHE
  Company Number: US-ROCHE-3416258

PATIENT
  Age: 71 Year
  Sex: Male

DRUGS (3)
  1. XOLAIR [Suspect]
     Active Substance: OMALIZUMAB
     Indication: Idiopathic urticaria
     Dosage: 150 MG EVERY 4-5 WEEKS
     Route: 058
  2. XOLAIR [Suspect]
     Active Substance: OMALIZUMAB
  3. EPIPEN [Concomitant]
     Active Substance: EPINEPHRINE

REACTIONS (2)
  - Off label use [Unknown]
  - No adverse event [Unknown]
